FAERS Safety Report 19603546 (Version 3)
Quarter: 2021Q3

REPORT INFORMATION
  Report Type: Spontaneous
  Country: CN (occurrence: CN)
  Receive Date: 20210723
  Receipt Date: 20210806
  Transmission Date: 20211014
  Serious: Yes (Death, Hospitalization, Other)
  Sender: FDA-Public Use
  Company Number: CN-ASTRAZENECA-2021A633481

PATIENT
  Age: 68 Year
  Sex: Female
  Weight: 60 kg

DRUGS (2)
  1. IMFINZI [Suspect]
     Active Substance: DURVALUMAB
     Indication: NON-SMALL CELL LUNG CANCER STAGE III
     Dosage: 620MG, USING SPECIFICATION WAS 500MG/10ML, 120MG/2.4ML
     Route: 042
     Dates: start: 20200429, end: 20200513
  2. ETOPOSIDE. [Concomitant]
     Active Substance: ETOPOSIDE

REACTIONS (2)
  - Inflammation [Recovering/Resolving]
  - Metastases to liver [Not Recovered/Not Resolved]

NARRATIVE: CASE EVENT DATE: 202106
